FAERS Safety Report 5027832-3 (Version None)
Quarter: 2006Q2

REPORT INFORMATION
  Report Type: 
  Country: None (occurrence: None)
  Receive Date: 20060616
  Receipt Date: 20060412
  Transmission Date: 20061013
  Serious: Yes (Hospitalization, Other)
  Sender: FDA-Public Use
  Company Number: AU-AMGEN-US176199

PATIENT
  Sex: Male
  Weight: 78 kg

DRUGS (5)
  1. ARANESP [Suspect]
     Indication: RENAL FAILURE CHRONIC
     Route: 058
     Dates: start: 20050411, end: 20060314
  2. ENALAPRIL [Concomitant]
     Dates: start: 20060101
  3. ASPIRIN [Concomitant]
     Dates: start: 20040101
  4. LIPITOR [Concomitant]
     Dates: start: 20040101
  5. SOMAC [Concomitant]
     Dates: start: 20060101

REACTIONS (5)
  - ANAEMIA [None]
  - ANTI-ERYTHROPOIETIN ANTIBODY POSITIVE [None]
  - APLASIA PURE RED CELL [None]
  - ASTHENIA [None]
  - LETHARGY [None]
